FAERS Safety Report 16256209 (Version 2)
Quarter: 2019Q2

REPORT INFORMATION
  Report Type: Spontaneous
  Country: US (occurrence: US)
  Receive Date: 20190430
  Receipt Date: 20190523
  Transmission Date: 20190711
  Serious: No
  Sender: FDA-Public Use
  Company Number: US-PFIZER INC-2019177707

PATIENT
  Age: 61 Year
  Sex: Female
  Weight: 80.36 kg

DRUGS (18)
  1. CETIRIZINE [Concomitant]
     Active Substance: CETIRIZINE HYDROCHLORIDE
     Dosage: 10 MG, DAILY
     Route: 048
     Dates: end: 20190418
  2. DULERA [Concomitant]
     Active Substance: FORMOTEROL FUMARATE DIHYDRATE\MOMETASONE FUROATE
     Dosage: 2 DF (2 PUFFS), 2 TIMES PER DAY(MOMETASONE 200 MCG/ FORMOTEROL 5 MCG)
     Route: 055
     Dates: end: 20190418
  3. SEROQUEL [Concomitant]
     Active Substance: QUETIAPINE FUMARATE
     Dosage: 200 MG, EVERY DAY AT BEDTIME
     Route: 048
     Dates: end: 20190418
  4. XANAX [Concomitant]
     Active Substance: ALPRAZOLAM
     Dosage: 1 MG, DAILY (TAKES (1/2) OF 2MG TABLET)
     Route: 048
     Dates: end: 20190419
  5. LYRICA [Suspect]
     Active Substance: PREGABALIN
     Dosage: 150 MG, TWICE A DAY
     Route: 048
     Dates: end: 20190418
  6. ADDERALL [Concomitant]
     Active Substance: AMPHETAMINE ASPARTATE\AMPHETAMINE SULFATE\DEXTROAMPHETAMINE SACCHARATE\DEXTROAMPHETAMINE SULFATE
     Dosage: 30 MG, 2 TIMES PER DAY
     Route: 048
     Dates: end: 20190418
  7. OXYGEN. [Concomitant]
     Active Substance: OXYGEN
     Dosage: UNK
  8. LINZESS [Concomitant]
     Active Substance: LINACLOTIDE
     Dosage: 72 UG, AS NEEDED (DAILY AS NEEDED)
     Route: 048
     Dates: end: 20190418
  9. PRENATAL [Concomitant]
     Active Substance: VITAMINS
     Dosage: 1 DF (TABLET), DAILY
     Route: 048
     Dates: end: 20190418
  10. ALBUTEROL. [Concomitant]
     Active Substance: ALBUTEROL
     Dosage: 1.25 MG, AS NEEDED (INHALED EVERY 6 HOURS AS NEEDED)
     Route: 055
     Dates: end: 20190418
  11. XANAX [Concomitant]
     Active Substance: ALPRAZOLAM
     Dosage: 2 MG, ONCE A DAY ( EVERY EVENING)
     Route: 048
     Dates: end: 20190418
  12. FLOMAX [Concomitant]
     Active Substance: TAMSULOSIN HYDROCHLORIDE
     Dosage: 0.4 MG, DAILY
     Route: 048
     Dates: end: 20190419
  13. ROPINIROLE. [Concomitant]
     Active Substance: ROPINIROLE
     Dosage: 1 MG, 2 TIMES PER DAY
     Route: 048
     Dates: end: 20190419
  14. SINGULAIR [Concomitant]
     Active Substance: MONTELUKAST SODIUM
     Dosage: 10 MG, EVERY DAY AT BEDTIME
     Route: 048
     Dates: end: 20190418
  15. LOMOTIL [Concomitant]
     Active Substance: ATROPINE SULFATE\DIPHENOXYLATE HYDROCHLORIDE
     Dosage: 1 DF, AS NEEDED (2.5 MG-0.025 MG)/(1 TABLET BY MOUTH EVERY 8 HOURS AS NEEDED)
     Route: 048
     Dates: end: 20190418
  16. SYMBICORT [Concomitant]
     Active Substance: BUDESONIDE\FORMOTEROL FUMARATE DIHYDRATE
     Dosage: 2 DF (2 PUFFS), 2 TIMES PER DAY (BUDESONIDE 160 MCG/FORMOTEROL FUMARATE DIHYDRATE 4.5 MCG)
     Route: 055
     Dates: end: 20190418
  17. LANSOPRAZOLE. [Concomitant]
     Active Substance: LANSOPRAZOLE
     Dosage: 30 MG, DAILY
     Route: 048
     Dates: end: 20190419
  18. ALIGN [Concomitant]
     Active Substance: BIFIDOBACTERIUM LONGUM SUBSP. INFANTIS
     Dosage: 4 MG, DAILY
     Route: 048
     Dates: end: 20190418

REACTIONS (1)
  - Throat irritation [Unknown]
